FAERS Safety Report 16027602 (Version 1)
Quarter: 2019Q1

REPORT INFORMATION
  Report Type: Spontaneous
  Country: US (occurrence: US)
  Receive Date: 20190304
  Receipt Date: 20190304
  Transmission Date: 20190418
  Serious: Yes (Other)
  Sender: FDA-Public Use
  Company Number: US-BRISTOL-MYERS SQUIBB COMPANY-BMS-2019-019540

PATIENT
  Age: 50 Year
  Sex: Female

DRUGS (2)
  1. ABATACEPT [Suspect]
     Active Substance: ABATACEPT
     Indication: CONGENITAL CYSTIC KIDNEY DISEASE
     Route: 065
  2. ABATACEPT [Suspect]
     Active Substance: ABATACEPT
     Indication: IMMUNOSUPPRESSION
     Dosage: 10 MG/KG, QMO
     Route: 042

REACTIONS (2)
  - Kidney transplant rejection [Unknown]
  - Product use in unapproved indication [Unknown]
